FAERS Safety Report 6915387-5 (Version None)
Quarter: 2010Q3

REPORT INFORMATION
  Report Type: 
  Country: None (occurrence: None)
  Receive Date: 20100809
  Receipt Date: 20100204
  Transmission Date: 20110219
  Serious: No
  Sender: FDA-Public Use
  Company Number: US-ABBOTT-10P-163-0624670-00

PATIENT
  Sex: Female
  Weight: 67.646 kg

DRUGS (6)
  1. DEPAKOTE ER [Suspect]
     Indication: CONVULSION
     Dates: start: 20050101
  2. DEPAKOTE ER [Suspect]
     Indication: BIPOLAR DISORDER
  3. PHENYTOIN [Concomitant]
     Indication: GRAND MAL CONVULSION
     Dates: end: 20060101
  4. CLONAZEPAM [Concomitant]
     Indication: INSOMNIA
  5. CLONAZEPAM [Concomitant]
     Indication: ANXIETY
  6. CELEXA [Concomitant]
     Indication: DEPRESSION

REACTIONS (6)
  - ALOPECIA [None]
  - HEPATIC ENZYME INCREASED [None]
  - HYPERTENSION [None]
  - MENOPAUSE [None]
  - OSTEOPENIA [None]
  - WEIGHT INCREASED [None]
